FAERS Safety Report 7985169-4 (Version None)
Quarter: 2011Q4

REPORT INFORMATION
  Report Type: 
  Country: None (occurrence: None)
  Receive Date: 20111216
  Receipt Date: 20111205
  Transmission Date: 20120403
  Serious: Yes (Hospitalization)
  Sender: FDA-Public Use
  Company Number: CA-JNJFOC-20111013062

PATIENT
  Sex: Female
  Weight: 59.4 kg

DRUGS (4)
  1. REMICADE [Suspect]
     Indication: COLITIS ULCERATIVE
     Route: 042
     Dates: start: 20111018
  2. REMICADE [Suspect]
     Route: 042
     Dates: start: 20111101
  3. IMURAN [Concomitant]
     Route: 065
  4. REMICADE [Suspect]
     Route: 042
     Dates: start: 20111101

REACTIONS (3)
  - FATIGUE [None]
  - COLITIS ULCERATIVE [None]
  - PAIN [None]
